FAERS Safety Report 9387617 (Version 1)
Quarter: 2013Q3

REPORT INFORMATION
  Report Type: Spontaneous
  Country: US (occurrence: US)
  Receive Date: 20130708
  Receipt Date: 20130708
  Transmission Date: 20140515
  Serious: Yes (Other)
  Sender: FDA-Public Use
  Company Number: US-PFIZER INC-2013199968

PATIENT
  Age: 51 Year
  Sex: Male
  Weight: 109 kg

DRUGS (2)
  1. XANAX [Suspect]
     Indication: ANXIETY
     Dosage: 1 MG, 3X/DAY
     Dates: start: 2005
  2. XANAX [Suspect]
     Indication: SLEEP DISORDER
     Dosage: 1 MG, AS NEEDED

REACTIONS (6)
  - Off label use [Unknown]
  - Convulsion [Unknown]
  - Spinal disorder [Unknown]
  - Exostosis [Unknown]
  - Tremor [Unknown]
  - Intentional drug misuse [Unknown]
